FAERS Safety Report 11569905 (Version 2)
Quarter: 2015Q4

REPORT INFORMATION
  Report Type: Spontaneous
  Country: FR (occurrence: FR)
  Receive Date: 20150929
  Receipt Date: 20151007
  Transmission Date: 20160304
  Serious: Yes (Hospitalization)
  Sender: FDA-Public Use
  Company Number: FR-PFIZER INC-2015321630

PATIENT
  Age: 58 Year
  Sex: Male

DRUGS (2)
  1. TAZOCILLINE [Suspect]
     Active Substance: PIPERACILLIN SODIUM\TAZOBACTAM SODIUM
     Indication: WOUND INFECTION
     Dosage: UNK
     Route: 042
     Dates: start: 20150715, end: 20150720
  2. CUBICIN [Suspect]
     Active Substance: DAPTOMYCIN
     Indication: WOUND INFECTION
     Dosage: 700 MG, EVERY 48 HOURS
     Route: 042
     Dates: start: 20150715, end: 20150802

REACTIONS (3)
  - Renal failure [Recovered/Resolved]
  - Eosinophilia [Recovered/Resolved]
  - Pneumonia [Recovered/Resolved]

NARRATIVE: CASE EVENT DATE: 20150720
